FAERS Safety Report 5146369-4 (Version None)
Quarter: 2006Q4

REPORT INFORMATION
  Report Type: 
  Country: None (occurrence: None)
  Receive Date: 20061102
  Receipt Date: 20061012
  Transmission Date: 20070319
  Serious: Yes (Death)
  Sender: FDA-Public Use
  Company Number: 2006131709

PATIENT
  Age: 48 Year
  Sex: Male

DRUGS (1)
  1. BEXTRA [Suspect]
     Indication: INFLAMMATION

REACTIONS (1)
  - MYOCARDIAL INFARCTION [None]
